FAERS Safety Report 5255681-X (Version None)
Quarter: 2007Q1

REPORT INFORMATION
  Report Type: 
  Country: None (occurrence: None)
  Receive Date: 20070305
  Receipt Date: 20070221
  Transmission Date: 20070707
  Serious: Yes (Hospitalization, Other)
  Sender: FDA-Public Use
  Company Number: US-PFIZER INC-2006138059

PATIENT
  Sex: Female
  Weight: 65.8 kg

DRUGS (2)
  1. CELEBREX [Suspect]
     Indication: MYALGIA
     Route: 048
  2. CELEBREX [Suspect]
     Indication: BACK PAIN

REACTIONS (3)
  - CARDIAC ARREST [None]
  - CEREBROVASCULAR ACCIDENT [None]
  - DEPRESSION [None]
